FAERS Safety Report 5396561-9 (Version None)
Quarter: 2007Q3

REPORT INFORMATION
  Report Type: 
  Country: None (occurrence: None)
  Receive Date: 20070725
  Receipt Date: 20070720
  Transmission Date: 20080115
  Serious: Yes (Life-Threatening, Hospitalization, Other)
  Sender: FDA-Public Use
  Company Number: GB-ASTRAZENECA-2007GB01522

PATIENT
  Age: 41 Year
  Sex: Female

DRUGS (5)
  1. PROPOFOL [Suspect]
     Route: 042
     Dates: start: 20070608
  2. DEXAMETHASONE 0.5MG TAB [Suspect]
     Route: 065
     Dates: start: 20070608
  3. FENTANYL TRANSDERMAL SYSTEM [Suspect]
     Route: 065
     Dates: start: 20070608
  4. MIDAZOLAM HCL [Suspect]
     Route: 065
     Dates: start: 20070608
  5. SUCCINYLCHOLINE CHLORIDE [Suspect]
     Route: 042
     Dates: start: 20070608

REACTIONS (4)
  - ANAPHYLACTIC REACTION [None]
  - BLOOD PRESSURE DECREASED [None]
  - CIRCULATORY COLLAPSE [None]
  - ERYTHEMA [None]
